FAERS Safety Report 7269541-6 (Version None)
Quarter: 2011Q1

REPORT INFORMATION
  Report Type: 
  Country: None (occurrence: None)
  Receive Date: 20110124
  Receipt Date: 20101231
  Transmission Date: 20110831
  Serious: Yes (Death)
  Sender: FDA-Public Use
  Company Number: AUR-APL-2011-00145

PATIENT
  Age: 38 Year
  Sex: Male

DRUGS (5)
  1. OPIOIDS [Concomitant]
  2. CITALOPRAM HYDROBROMIDE [Suspect]
  3. BENZODIAZEPINE DERIVATIVES [Concomitant]
  4. ETHANOL [Suspect]
  5. COCAINE [Suspect]

REACTIONS (2)
  - DRUG ABUSE [None]
  - TOXICITY TO VARIOUS AGENTS [None]
